FAERS Safety Report 6554956-1 (Version None)
Quarter: 2010Q1

REPORT INFORMATION
  Report Type: 
  Country: None (occurrence: None)
  Receive Date: 20100126
  Receipt Date: 20100126
  Transmission Date: 20100710
  Serious: Yes (Other)
  Sender: FDA-Public Use
  Company Number: None

PATIENT
  Sex: Male
  Weight: 21.4 kg

DRUGS (14)
  1. SINGULAIR [Suspect]
     Indication: ASTHMA
     Dosage: 4MG DAILY PO
     Route: 048
     Dates: start: 20061220, end: 20090620
  2. SINGULAIR [Suspect]
     Indication: RHINITIS ALLERGIC
     Dosage: 4MG DAILY PO
     Route: 048
     Dates: start: 20061220, end: 20090620
  3. SINGULAIR [Suspect]
     Indication: ASTHMA
     Dosage: 4MG DAILY PO
     Route: 048
     Dates: start: 20091105, end: 20091230
  4. SINGULAIR [Suspect]
     Indication: RHINITIS ALLERGIC
     Dosage: 4MG DAILY PO
     Route: 048
     Dates: start: 20091105, end: 20091230
  5. PULMICORT [Concomitant]
  6. PARI LC PLUS [Concomitant]
  7. XOPENEX [Concomitant]
  8. SALINE [Concomitant]
  9. TAVIST [Concomitant]
  10. NIVEA CREME [Concomitant]
  11. FORADIL [Concomitant]
  12. ALBUTEROL [Concomitant]
  13. PREDNISOLONE [Concomitant]
  14. GRISEOFULVIN [Concomitant]

REACTIONS (2)
  - AGGRESSION [None]
  - SPEECH DISORDER [None]
